FAERS Safety Report 21210229 (Version 1)
Quarter: 2022Q3

REPORT INFORMATION
  Report Type: Spontaneous
  Country: GB (occurrence: GB)
  Receive Date: 20220814
  Receipt Date: 20220814
  Transmission Date: 20221027
  Serious: Yes (Other)
  Sender: FDA-Public Use
  Company Number: GB-NOVARTISPH-NVSC2022GB183025

PATIENT
  Sex: Female

DRUGS (2)
  1. DEFERASIROX [Suspect]
     Active Substance: DEFERASIROX
     Indication: Iron overload
     Dosage: UNK
     Route: 065
  2. DEFERASIROX [Suspect]
     Active Substance: DEFERASIROX
     Indication: Spherocytic anaemia

REACTIONS (1)
  - Hallucination, auditory [Unknown]
